FAERS Safety Report 9443718 (Version 3)
Quarter: 2013Q4

REPORT INFORMATION
  Report Type: Report from Study
  Country: JP (occurrence: JP)
  Receive Date: 20130806
  Receipt Date: 20131126
  Transmission Date: 20140711
  Serious: Yes (Hospitalization)
  Sender: FDA-Public Use
  Company Number: JP-MERCK-1308JPN001861

PATIENT
  Age: 52 Year
  Sex: Female
  Weight: 71 kg

DRUGS (13)
  1. DEXAMETHASONE [Suspect]
     Indication: PLASMA CELL MYELOMA
     Dosage: 20 MG/DAY, EACH CYCLE OF DAY 1,2,4,5,8,11,12
     Dates: start: 20130704, end: 20130715
  2. TABALUMAB [Suspect]
     Indication: PLASMA CELL MYELOMA
     Dosage: 300 MG, (EACH CYCLE OF DAY 1)
     Dates: start: 20130704, end: 20130704
  3. BORTEZOMIB [Suspect]
     Indication: PLASMA CELL MYELOMA
     Dosage: 1.3 MG/M2, (EACH CYCLE OF DAY 1,4,8,11)
     Dates: start: 20130704, end: 20130714
  4. CLARITH [Concomitant]
     Indication: PRODUCT USED FOR UNKNOWN INDICATION
     Dosage: UNK
     Dates: start: 20121025
  5. ZYLORIC [Concomitant]
     Indication: PRODUCT USED FOR UNKNOWN INDICATION
     Dosage: UNK
     Dates: start: 20130702
  6. ZOVIRAX [Concomitant]
     Indication: PRODUCT USED FOR UNKNOWN INDICATION
     Dosage: UNK
     Dates: start: 20130701
  7. MUCODYNE [Concomitant]
     Indication: PRODUCT USED FOR UNKNOWN INDICATION
     Dosage: UNK
     Dates: start: 20110712
  8. MAGLAX [Concomitant]
     Indication: PRODUCT USED FOR UNKNOWN INDICATION
     Dosage: UNK
     Dates: start: 20130714
  9. ITRIZOLE [Concomitant]
     Indication: PRODUCT USED FOR UNKNOWN INDICATION
     Dosage: UNK
     Dates: start: 20130702
  10. NEXIUM [Concomitant]
     Indication: PRODUCT USED FOR UNKNOWN INDICATION
     Dosage: UNK
     Dates: start: 20121126
  11. BACTRIM [Concomitant]
     Indication: PRODUCT USED FOR UNKNOWN INDICATION
     Dosage: UNK
     Dates: start: 20130620
  12. BONALON [Concomitant]
     Dosage: UNK
     Dates: start: 20130620
  13. KALIMATE [Concomitant]
     Indication: PRODUCT USED FOR UNKNOWN INDICATION
     Dosage: UNK
     Dates: start: 20130714, end: 20130720

REACTIONS (2)
  - Syncope [Recovered/Resolved]
  - Peripheral sensory neuropathy [Recovering/Resolving]
